FAERS Safety Report 17406997 (Version 1)
Quarter: 2020Q1

REPORT INFORMATION
  Report Type: Spontaneous
  Country: FI (occurrence: FI)
  Receive Date: 20200212
  Receipt Date: 20200212
  Transmission Date: 20200409
  Serious: Yes (Other)
  Sender: FDA-Public Use
  Company Number: FI-ROCHE-2540320

PATIENT
  Sex: Female

DRUGS (11)
  1. SALAZOPYRIN [Concomitant]
     Active Substance: SULFASALAZINE
  2. MABTHERA [Suspect]
     Active Substance: RITUXIMAB
     Indication: PRODUCT USED FOR UNKNOWN INDICATION
     Route: 065
  3. ARAVA [Concomitant]
     Active Substance: LEFLUNOMIDE
  4. PREDNISOLONE. [Concomitant]
     Active Substance: PREDNISOLONE
     Dosage: 5 MG
     Route: 065
  5. ROACTEMRA [Suspect]
     Active Substance: TOCILIZUMAB
     Indication: RHEUMATOID ARTHRITIS
     Route: 042
     Dates: start: 201610, end: 20191211
  6. TREXAN [METHOTREXATE] [Concomitant]
     Dosage: PER WEEK
     Route: 065
  7. REMICADE [Concomitant]
     Active Substance: INFLIXIMAB
  8. ENBREL [Concomitant]
     Active Substance: ETANERCEPT
     Route: 065
     Dates: start: 201006
  9. HUMIRA [Concomitant]
     Active Substance: ADALIMUMAB
  10. ORENCIA [Concomitant]
     Active Substance: ABATACEPT
  11. CIMZIA [Concomitant]
     Active Substance: CERTOLIZUMAB PEGOL

REACTIONS (8)
  - Dyspnoea [Unknown]
  - Pruritus [Unknown]
  - Blood pressure increased [Unknown]
  - Speech disorder [Unknown]
  - Heart rate increased [Unknown]
  - Fatigue [Unknown]
  - Paraesthesia oral [Unknown]
  - Pyrexia [Unknown]
